FAERS Safety Report 5351062-9 (Version None)
Quarter: 2007Q2

REPORT INFORMATION
  Report Type: 
  Country: None (occurrence: None)
  Receive Date: 20070608
  Receipt Date: 20070531
  Transmission Date: 20071010
  Serious: Yes (Death, Hospitalization, Other)
  Sender: FDA-Public Use
  Company Number: US-PFIZER INC-2006133766

PATIENT
  Sex: Male

DRUGS (3)
  1. CELEBREX [Suspect]
     Indication: ARTHRITIS
     Route: 048
     Dates: start: 20011204, end: 20021019
  2. BEXTRA [Suspect]
     Indication: PAIN MANAGEMENT
     Route: 048
     Dates: end: 20021024
  3. VIOXX [Suspect]
     Route: 048
     Dates: start: 20011204, end: 20021019

REACTIONS (5)
  - AZOTAEMIA [None]
  - MYOCARDIAL INFARCTION [None]
  - PNEUMONIA ASPIRATION [None]
  - PROSTATE CANCER METASTATIC [None]
  - URETERIC OBSTRUCTION [None]
